FAERS Safety Report 5934946-X (Version None)
Quarter: 2008Q4

REPORT INFORMATION
  Report Type: 
  Country: None (occurrence: None)
  Receive Date: 20081028
  Receipt Date: 20081014
  Transmission Date: 20090506
  Serious: Yes (Death)
  Sender: FDA-Public Use
  Company Number: ALK_00730_2008

PATIENT
  Sex: Male

DRUGS (4)
  1. VIVITROL [Suspect]
     Indication: ALCOHOLISM
     Dosage: (380 MG  1X/MONTH INTRAMUSCULAR)
     Route: 030
  2. LEXAPRO [Concomitant]
  3. CAMPRAL /01016802/ [Concomitant]
  4. FLONASE [Concomitant]

REACTIONS (1)
  - DEATH [None]
